FAERS Safety Report 21553714 (Version 1)
Quarter: 2022Q4

REPORT INFORMATION
  Report Type: Report from Study
  Country: US (occurrence: US)
  Receive Date: 20221104
  Receipt Date: 20221104
  Transmission Date: 20230113
  Serious: No
  Sender: FDA-Public Use
  Company Number: US-ABBVIE-4135594

PATIENT
  Age: 38 Year
  Sex: Male

DRUGS (7)
  1. HUMIRA [Suspect]
     Active Substance: ADALIMUMAB
     Indication: Hidradenitis
     Dosage: ONE IN ONCE FREQUENCY?DAY 1?FORM STRENGTH: 80 MILLIGRAM
     Route: 058
     Dates: start: 20211122, end: 20211122
  2. HUMIRA [Suspect]
     Active Substance: ADALIMUMAB
     Dosage: FORM STRENGTH: 80 MILLIGRAM
     Route: 058
     Dates: start: 20211221, end: 202209
  3. HUMIRA [Suspect]
     Active Substance: ADALIMUMAB
     Dosage: ONE IN ONCE FREQUENCY?DAY 15?FORM STRENGTH: 80 MILLIGRAM
     Route: 058
     Dates: start: 20211207, end: 20211207
  4. HUMIRA [Suspect]
     Active Substance: ADALIMUMAB
     Dosage: FORM STRENGTH: 80 MILLIGRAM
     Route: 058
     Dates: start: 20220923
  5. MEASLES-MUMPS-RUBELLA VIRUS VACCINE [Concomitant]
     Active Substance: MEASLES-MUMPS-RUBELLA VIRUS VACCINE
     Indication: Product used for unknown indication
     Dosage: ONE IN ONCE FREQUENCY
     Dates: start: 202209, end: 202209
  6. TETANUS TOXOID, REDUCED DIPHTHERIA TOXOID AND ACELLULAR PERTUSSIS VACC [Concomitant]
     Active Substance: TETANUS TOXOID, REDUCED DIPHTHERIA TOXOID AND ACELLULAR PERTUSSIS VACCINE ADSORBED, TDAP
     Indication: Product used for unknown indication
     Dosage: ONE IN ONCE FREQUENCY
     Dates: start: 202209, end: 202209
  7. HEPATITIS B VIRUS VACCINE [Concomitant]
     Active Substance: HEPATITIS B VIRUS VACCINE
     Indication: Product used for unknown indication
     Dosage: ONE IN ONCE FREQUENCY
     Dates: start: 202209, end: 202209

REACTIONS (1)
  - Hidradenitis [Not Recovered/Not Resolved]

NARRATIVE: CASE EVENT DATE: 20220901
